FAERS Safety Report 4389151-8 (Version None)
Quarter: 2004Q3

REPORT INFORMATION
  Report Type: 
  Country: None (occurrence: None)
  Receive Date: 20040702
  Receipt Date: 20040225
  Transmission Date: 20050211
  Serious: No
  Sender: FDA-Public Use
  Company Number: US-GLAXOSMITHKLINE-A0499855A

PATIENT
  Age: 44 Year
  Sex: Female

DRUGS (4)
  1. PARNATE [Suspect]
     Dosage: 30MG THREE TIMES PER DAY
     Route: 048
  2. KLONOPIN [Concomitant]
  3. LAMICTAL [Concomitant]
  4. NEURONTIN [Concomitant]

REACTIONS (1)
  - HEADACHE [None]
